FAERS Safety Report 6851738-8 (Version None)
Quarter: 2010Q3

REPORT INFORMATION
  Report Type: 
  Country: None (occurrence: None)
  Receive Date: 20100717
  Receipt Date: 20071029
  Transmission Date: 20110219
  Serious: No
  Sender: FDA-Public Use
  Company Number: US-PFIZER INC-2007092428

PATIENT
  Sex: Female
  Weight: 59 kg

DRUGS (10)
  1. CHANTIX [Suspect]
     Indication: SMOKING CESSATION THERAPY
     Dates: start: 20071021, end: 20071028
  2. WELLBUTRIN [Interacting]
     Indication: DEPRESSION
  3. GABAPENTIN [Interacting]
     Dosage: 400MG TID EVERY DAY TDD:1200MG
  4. SKELAXIN [Concomitant]
  5. ROBAXIN [Concomitant]
  6. LORTAB [Concomitant]
  7. KLONOPIN [Concomitant]
     Indication: PANIC ATTACK
  8. SIMVASTATIN [Concomitant]
     Indication: BLOOD CHOLESTEROL INCREASED
     Dates: start: 20070101
  9. PREMARIN [Concomitant]
  10. HYDROCHLOROTHIAZIDE [Concomitant]

REACTIONS (3)
  - DISSOCIATION [None]
  - DRUG INTERACTION [None]
  - MALAISE [None]
